FAERS Safety Report 18707356 (Version 3)
Quarter: 2021Q1

REPORT INFORMATION
  Report Type: Report from Study
  Country: ES (occurrence: ES)
  Receive Date: 20210106
  Receipt Date: 20210304
  Transmission Date: 20210419
  Serious: Yes (Hospitalization)
  Sender: FDA-Public Use
  Company Number: ES-AMGEN-ESPCT2021000379

PATIENT
  Age: 69 Year
  Sex: Male
  Weight: 55 kg

DRUGS (14)
  1. CARFILZOMIB [Suspect]
     Active Substance: CARFILZOMIB
     Indication: PLASMA CELL MYELOMA
     Dosage: 20 MILLIGRAM/SQ. METER, PER CHEMO REGIM
     Route: 042
     Dates: start: 20201109
  2. DEXAMETHASONE. [Suspect]
     Active Substance: DEXAMETHASONE
     Indication: PLASMA CELL MYELOMA
     Dosage: 20 MILLIGRAM, PER CHEMO REGIM
     Route: 048
     Dates: start: 20201109
  3. SILODYX [Concomitant]
     Active Substance: SILODOSIN
     Indication: BENIGN PROSTATIC HYPERPLASIA
     Dosage: 8 MILLIGRAM
     Route: 048
  4. APIDRA [Concomitant]
     Active Substance: INSULIN GLULISINE
     Indication: DIABETES MELLITUS
     Dosage: 40 INTERNATIONAL UNIT
     Route: 058
     Dates: start: 20160418
  5. DEXAMETHASONE. [Suspect]
     Active Substance: DEXAMETHASONE
     Dosage: 20 MILLIGRAM, PER CHEMO REGIM
     Route: 048
  6. LENALIDOMIDE [Suspect]
     Active Substance: LENALIDOMIDE
     Indication: PLASMA CELL MYELOMA
     Dosage: 25 MILLIGRAM, PER CHEMO REGIM
     Route: 048
     Dates: start: 20201109
  7. LENALIDOMIDE [Suspect]
     Active Substance: LENALIDOMIDE
     Dosage: 25 MILLIGRAM, PER CHEMO REGIM
     Route: 048
  8. ALBUMIN [Concomitant]
     Active Substance: ALBUMIN HUMAN
     Indication: ASCITES
     Dosage: UNK
     Route: 042
  9. ALBUMIN [Concomitant]
     Active Substance: ALBUMIN HUMAN
     Indication: RENAL DISORDER
  10. OMEPRAZOLE. [Concomitant]
     Active Substance: OMEPRAZOLE
     Indication: PROPHYLAXIS
     Dosage: 20 MILLIGRAM
     Route: 048
     Dates: start: 20170125
  11. CARFILZOMIB [Suspect]
     Active Substance: CARFILZOMIB
     Dosage: 36 MILLIGRAM/SQ. METER, PER CHEMO REGIM
     Route: 042
  12. LOSARTAN. [Concomitant]
     Active Substance: LOSARTAN
     Indication: HYPERTENSION
     Dosage: 100 MILLIGRAM
     Route: 048
     Dates: start: 20180213
  13. EBASTINE [Concomitant]
     Active Substance: EBASTINE
     Indication: HYPERSENSITIVITY
     Dosage: 10 MILLIGRAM
     Route: 048
     Dates: start: 20160407
  14. FUROSIMIDE [Concomitant]
     Active Substance: FUROSEMIDE
     Indication: LIVER DISORDER
     Dosage: 20 MILLIGRAM EVERY 6 HOURS
     Route: 042
     Dates: start: 20201123, end: 20201201

REACTIONS (1)
  - Liver disorder [Recovered/Resolved]

NARRATIVE: CASE EVENT DATE: 20201230
